FAERS Safety Report 4586626-3 (Version None)
Quarter: 2005Q1

REPORT INFORMATION
  Report Type: 
  Country: None (occurrence: None)
  Receive Date: 20050218
  Receipt Date: 20040805
  Transmission Date: 20050727
  Serious: No
  Sender: FDA-Public Use
  Company Number: US-BRISTOL-MYERS SQUIBB COMPANY-12661872

PATIENT
  Age: 66 Year
  Sex: Male
  Weight: 109 kg

DRUGS (9)
  1. TAXOL [Suspect]
     Indication: LUNG NEOPLASM MALIGNANT
     Dosage: 12/26/2003,1/14/2004, 2/4/2004 AND 2/25/2004
     Route: 042
     Dates: start: 20041226, end: 20040225
  2. BLOOD PRESSURE MEDICATION [Concomitant]
  3. ATIVAN [Concomitant]
     Dosage: PRE-MED
  4. DECADRON [Concomitant]
     Dosage: 20-30 MG PRE-MED
  5. BENADRYL [Concomitant]
     Dosage: 25 - 50 MG PRE-MED
  6. ZANTAC [Concomitant]
     Dosage: PRE-MED
  7. KYTRIL [Concomitant]
     Dosage: PRE-MED
  8. NEURONTIN [Concomitant]
  9. HYDROMORPHONE [Concomitant]

REACTIONS (2)
  - ASTHENIA [None]
  - PAIN IN EXTREMITY [None]
